FAERS Safety Report 15441771 (Version 1)
Quarter: 2018Q3

REPORT INFORMATION
  Report Type: Spontaneous
  Country: GB (occurrence: GB)
  Receive Date: 20180928
  Receipt Date: 20180928
  Transmission Date: 20181010
  Serious: Yes (Death)
  Sender: FDA-Public Use
  Company Number: GB-LPDUSPRD-20181755

PATIENT
  Age: 90 Year
  Sex: Male

DRUGS (1)
  1. FERINJECT [Suspect]
     Active Substance: FERRIC CARBOXYMALTOSE
     Dosage: 1 GM
     Route: 041
     Dates: start: 20180801, end: 20180801

REACTIONS (2)
  - Anaphylactic reaction [Fatal]
  - Death [Fatal]

NARRATIVE: CASE EVENT DATE: 20180801
